FAERS Safety Report 4579357-7 (Version None)
Quarter: 2005Q1

REPORT INFORMATION
  Report Type: 
  Country: None (occurrence: None)
  Receive Date: 20050209
  Receipt Date: 20050126
  Transmission Date: 20050727
  Serious: Yes (Hospitalization)
  Sender: FDA-Public Use
  Company Number: 310001L05USA

PATIENT
  Age: 31 Year
  Sex: Female

DRUGS (4)
  1. GONAL-F [Suspect]
     Indication: INFERTILITY FEMALE
     Dosage: SEE IMAGE
     Route: 058
  2. GONAL-F [Suspect]
     Indication: INFERTILITY FEMALE
     Dosage: SEE IMAGE
     Route: 058
  3. CETROTIDE [Suspect]
     Indication: INFERTILITY FEMALE
     Dosage: 25 MG, 1 IN 1 DAYS, SUBCUTANEOUS
     Route: 058
  4. NOVAREL (CHORIONIC GONADOTROHIN) [Suspect]
     Indication: INFERTILITY FEMALE
     Dosage: 10000 IU, 1 IN 1 ONCE, SUBCUTANEOUS
     Route: 058

REACTIONS (6)
  - ABDOMINAL PAIN LOWER [None]
  - ABORTION SPONTANEOUS [None]
  - DRUG EXPOSURE DURING PREGNANCY [None]
  - INGUINAL HERNIA, OBSTRUCTIVE [None]
  - PAROVARIAN CYST [None]
  - PREGNANCY [None]
